FAERS Safety Report 9476304 (Version 1)
Quarter: 2013Q3

REPORT INFORMATION
  Report Type: Report from Study
  Country: CA (occurrence: CA)
  Receive Date: 20130826
  Receipt Date: 20130826
  Transmission Date: 20140515
  Serious: Yes (Other)
  Sender: FDA-Public Use
  Company Number: CA-JNJFOC-20130809699

PATIENT
  Sex: Female
  Weight: 65 kg

DRUGS (5)
  1. REMICADE [Suspect]
     Indication: CROHN^S DISEASE
     Route: 042
     Dates: start: 2007
  2. IMURAN [Concomitant]
     Route: 065
  3. CIPROFLOXACIN [Concomitant]
     Route: 065
  4. PENTASA [Concomitant]
     Route: 065
  5. VITAMIN B12 [Concomitant]
     Route: 065

REACTIONS (2)
  - Nephrolithiasis [Recovering/Resolving]
  - Fistula [Unknown]
